FAERS Safety Report 13252583 (Version 1)
Quarter: 2017Q1

REPORT INFORMATION
  Report Type: Spontaneous
  Country: CA (occurrence: CA)
  Receive Date: 20170220
  Receipt Date: 20170220
  Transmission Date: 20170428
  Serious: Yes (Disabling)
  Sender: FDA-Public Use
  Company Number: CA-TEVA-741570ACC

PATIENT
  Age: 64 Year
  Sex: Female

DRUGS (13)
  1. FUROSEMIDE INJ USP [Concomitant]
     Active Substance: FUROSEMIDE
  2. PANTOPRAZOLE [Suspect]
     Active Substance: PANTOPRAZOLE SODIUM
     Indication: GASTROOESOPHAGEAL REFLUX DISEASE
     Route: 048
  3. ELAVIL [Concomitant]
     Active Substance: AMITRIPTYLINE HYDROCHLORIDE
  4. PANTOPRAZOLE [Suspect]
     Active Substance: PANTOPRAZOLE SODIUM
     Route: 048
  5. SINGULAIR [Concomitant]
     Active Substance: MONTELUKAST SODIUM
  6. PANTOPRAZOLE [Suspect]
     Active Substance: PANTOPRAZOLE SODIUM
     Route: 048
  7. ESTRACE [Concomitant]
     Active Substance: ESTRADIOL
  8. NITROGLYCERIN INJECTION USP [Concomitant]
  9. PANTOPRAZOLE [Suspect]
     Active Substance: PANTOPRAZOLE SODIUM
     Route: 048
  10. MORPHINE SULFATE INJECTION USP [Concomitant]
     Active Substance: MORPHINE SULFATE
  11. SPIRONOLACTONE. [Concomitant]
     Active Substance: SPIRONOLACTONE
  12. MELOXICAM. [Concomitant]
     Active Substance: MELOXICAM
  13. METOPROLOL. [Concomitant]
     Active Substance: METOPROLOL

REACTIONS (4)
  - Cough [Recovered/Resolved]
  - Gastrooesophageal reflux disease [Recovered/Resolved]
  - Vomiting [Recovered/Resolved]
  - Regurgitation [Recovered/Resolved]
